FAERS Safety Report 7995299-9 (Version None)
Quarter: 2011Q4

REPORT INFORMATION
  Report Type: 
  Country: None (occurrence: None)
  Receive Date: 20111220
  Receipt Date: 20111205
  Transmission Date: 20120403
  Serious: Yes (Hospitalization, Other)
  Sender: FDA-Public Use
  Company Number: PT-WATSON-2011-21522

PATIENT
  Age: 68 Year
  Sex: Male

DRUGS (4)
  1. MYCOPHENOLATE MEFETIL [Suspect]
     Indication: RENAL TRANSPLANT
     Dosage: UNK
     Route: 065
  2. METHYLPREDNISOLONE [Suspect]
     Indication: GRAFT DYSFUNCTION
  3. CYCLOSPORINE [Suspect]
     Indication: RENAL TRANSPLANT
     Dosage: UNK
     Route: 065
  4. PREDNISOLONE [Suspect]
     Indication: RENAL TRANSPLANT

REACTIONS (8)
  - LEUKOPENIA [None]
  - CONFUSIONAL STATE [None]
  - CONVULSION [None]
  - ACUTE RESPIRATORY DISTRESS SYNDROME [None]
  - CYTOMEGALOVIRUS INFECTION [None]
  - TRANSPLANT REJECTION [None]
  - DISSEMINATED CRYPTOCOCCOSIS [None]
  - GRAFT DYSFUNCTION [None]
